FAERS Safety Report 16618824 (Version 1)
Quarter: 2019Q3

REPORT INFORMATION
  Report Type: Spontaneous
  Country: US (occurrence: US)
  Receive Date: 20190723
  Receipt Date: 20190723
  Transmission Date: 20191004
  Serious: Yes (Hospitalization)
  Sender: FDA-Public Use
  Company Number: US-TEVA-2019-US-1081471

PATIENT
  Age: 74 Year
  Sex: Male

DRUGS (3)
  1. PRAZOSIN. [Concomitant]
     Active Substance: PRAZOSIN
     Dosage: EVERY NIGHT AT BEDTIME
     Route: 065
  2. NORTRIPTYLINE [Suspect]
     Active Substance: NORTRIPTYLINE
     Indication: DEPRESSION
     Route: 065
  3. FIORICET [Concomitant]
     Active Substance: ACETAMINOPHEN\BUTALBITAL\CAFFEINE
     Indication: HEADACHE
     Route: 065

REACTIONS (4)
  - Drug abuse [Unknown]
  - Contusion [Unknown]
  - Fall [Unknown]
  - Skin laceration [Unknown]
